FAERS Safety Report 21799468 (Version 2)
Quarter: 2024Q4

REPORT INFORMATION
  Report Type: Spontaneous
  Country: US (occurrence: US)
  Receive Date: 20221230
  Receipt Date: 20241224
  Transmission Date: 20250114
  Serious: No
  Sender: SANOFI AVENTIS
  Company Number: US-SANOFI-01423139

PATIENT
  Age: 70 Year
  Sex: Female

DRUGS (3)
  1. APIDRA [Suspect]
     Active Substance: INSULIN GLULISINE
     Indication: Diabetes mellitus
     Dosage: 14 IU, QD
     Route: 065
  2. APIDRA [Suspect]
     Active Substance: INSULIN GLULISINE
     Dosage: 60 IU, QD
     Route: 065
  3. LANTUS SOLOSTAR [Concomitant]
     Active Substance: INSULIN GLARGINE
     Dosage: UNK
     Route: 065

REACTIONS (2)
  - Visual impairment [Unknown]
  - Intentional product use issue [Unknown]
